FAERS Safety Report 5339840-3 (Version None)
Quarter: 2007Q2

REPORT INFORMATION
  Report Type: 
  Country: None (occurrence: None)
  Receive Date: 20070531
  Receipt Date: 20070516
  Transmission Date: 20071010
  Serious: Yes (Hospitalization)
  Sender: FDA-Public Use
  Company Number: US-ALLERGAN-0701037US

PATIENT
  Sex: Male

DRUGS (1)
  1. MYOBLOC [Suspect]
     Dosage: UNK, SINGLE
     Route: 030

REACTIONS (2)
  - DYSPHAGIA [None]
  - MUSCLE ATROPHY [None]
